FAERS Safety Report 23680527 (Version 1)
Quarter: 2024Q1

REPORT INFORMATION
  Report Type: Spontaneous
  Country: US (occurrence: US)
  Receive Date: 20240328
  Receipt Date: 20240328
  Transmission Date: 20240409
  Serious: No
  Sender: FDA-Public Use
  Company Number: US-BIOGEN-2019BI00789149

PATIENT
  Age: 42 Year
  Sex: Male

DRUGS (9)
  1. TECFIDERA [Suspect]
     Active Substance: DIMETHYL FUMARATE
     Indication: Multiple sclerosis
     Route: 050
     Dates: start: 20160920
  2. CYCLOBENZAPRINE [Concomitant]
     Active Substance: CYCLOBENZAPRINE
     Route: 050
  3. DOXEPIN HYDROCHLORIDE [Concomitant]
     Active Substance: DOXEPIN HYDROCHLORIDE
     Route: 050
  4. LYRICA [Concomitant]
     Active Substance: PREGABALIN
     Route: 050
  5. METOPROLOL [Concomitant]
     Active Substance: METOPROLOL
     Route: 050
  6. NOVOLOG [Concomitant]
     Active Substance: INSULIN ASPART
     Route: 050
  7. QULIPTA [Concomitant]
     Active Substance: ATOGEPANT
     Route: 050
  8. SUMATRIPTAN [Concomitant]
     Active Substance: SUMATRIPTAN
     Route: 050
  9. TOUJEO [Concomitant]
     Active Substance: INSULIN GLARGINE
     Route: 050

REACTIONS (2)
  - Multiple sclerosis [Not Recovered/Not Resolved]
  - Flushing [Unknown]

NARRATIVE: CASE EVENT DATE: 20160920
